FAERS Safety Report 6279711-1 (Version None)
Quarter: 2009Q3

REPORT INFORMATION
  Report Type: 
  Country: None (occurrence: None)
  Receive Date: 20090723
  Receipt Date: 20090716
  Transmission Date: 20100115
  Serious: Yes (Disabling)
  Sender: FDA-Public Use
  Company Number: DK-BAYER-200925649GPV

PATIENT
  Age: 54 Year
  Sex: Female

DRUGS (1)
  1. MAGNEVIST [Suspect]
     Indication: SCAN WITH CONTRAST
     Dosage: TOTAL DAILY DOSE: 10 ML
     Route: 042
     Dates: start: 20080624, end: 20080624

REACTIONS (2)
  - ARTHRALGIA [None]
  - MYALGIA [None]
